FAERS Safety Report 4556451-8 (Version None)
Quarter: 2005Q1

REPORT INFORMATION
  Report Type: 
  Country: None (occurrence: None)
  Receive Date: 20050114
  Receipt Date: 20050104
  Transmission Date: 20050727
  Serious: Yes (Hospitalization, Other)
  Sender: FDA-Public Use
  Company Number: 2005001897

PATIENT
  Age: 73 Year
  Sex: Male

DRUGS (9)
  1. ZYRTEC [Suspect]
     Indication: ILL-DEFINED DISORDER
     Dates: start: 19970101
  2. ASPIRIN [Suspect]
     Indication: ANTICOAGULANT THERAPY
     Dosage: ORAL
     Route: 048
     Dates: start: 19970101
  3. ALPHA-D-GALACTOSIDASE (ALPHA-D-GALACTOSIDASE) [Suspect]
     Indication: FLATULENCE
     Dosage: ORAL
     Route: 048
     Dates: start: 20010101
  4. METOPROLOL SUCCINATE [Suspect]
     Indication: ILL-DEFINED DISORDER
     Dates: start: 19970101
  5. ALL OTHER THERAPEUTICS PRODUCTS (ALL OTHER THERAPEUTIC PRODUCTS) [Suspect]
     Indication: BLOOD PRESSURE
     Dosage: ORAL
     Route: 048
     Dates: start: 19970101
  6. CARVEDILOL [Concomitant]
  7. GLUCOSAMINE (GLUCOSAMINE) [Concomitant]
  8. CENTRUM SILVER (ASCORBIC ACID, CALCIUM, MINERALS NOS, RETINOL, TOCOPHE [Concomitant]
  9. FOLIC ACID [Concomitant]

REACTIONS (4)
  - CARDIAC PACEMAKER INSERTION [None]
  - DIZZINESS [None]
  - DYSPNOEA [None]
  - LOSS OF CONSCIOUSNESS [None]
